FAERS Safety Report 14846303 (Version 2)
Quarter: 2018Q2

REPORT INFORMATION
  Report Type: Spontaneous
  Country: US (occurrence: US)
  Receive Date: 20180504
  Receipt Date: 20180522
  Transmission Date: 20180711
  Serious: No
  Sender: FDA-Public Use
  Company Number: US-BAYER-2018-083636

PATIENT
  Age: 13 Year
  Sex: Female

DRUGS (8)
  1. LEVONORGESTREL IUS [UNKNOWN] [Suspect]
     Active Substance: LEVONORGESTREL
     Indication: VON WILLEBRAND^S DISEASE
  2. HYDROCORTISONE. [Concomitant]
     Active Substance: HYDROCORTISONE
     Indication: ANAPHYLACTIC REACTION
     Dosage: 1 DF, UNK
  3. DIPHENHYDRAMINE. [Concomitant]
     Active Substance: DIPHENHYDRAMINE
     Indication: ANAPHYLACTIC REACTION
     Dosage: 2 DF, UNK
  4. LEVONORGESTREL IUS [UNKNOWN] [Suspect]
     Active Substance: LEVONORGESTREL
     Indication: MENORRHAGIA
     Dosage: UNK
     Route: 015
  5. NORETHINDRONE. [Concomitant]
     Active Substance: NORETHINDRONE
     Indication: MENORRHAGIA
  6. PLASMA PROTEIN FRACTION (HUMAN) [Concomitant]
     Active Substance: PLASMA PROTEIN FRACTION (HUMAN)
     Indication: MENORRHAGIA
  7. ANTIHEMOPHILIC FACTOR (RECOMBINANT), SUCROSE FORMULATED FS [Suspect]
     Active Substance: ANTIHEMOPHILIC FACTOR, HUMAN RECOMBINANT
     Indication: COAGULATION FACTOR VII LEVEL DECREASED
  8. VON WILLEBRAND FACTOR [Concomitant]
     Active Substance: VON WILLEBRAND FACTOR HUMAN
     Indication: MENORRHAGIA

REACTIONS (4)
  - Urticaria [None]
  - Pruritus [None]
  - Off label use [None]
  - Product use in unapproved indication [None]
